FAERS Safety Report 4466155-8 (Version None)
Quarter: 2004Q3

REPORT INFORMATION
  Report Type: 
  Country: None (occurrence: None)
  Receive Date: 20040930
  Receipt Date: 20040916
  Transmission Date: 20050211
  Serious: Yes (Hospitalization, Other)
  Sender: FDA-Public Use
  Company Number: 2004223032AU

PATIENT
  Age: 62 Year
  Sex: Female
  Weight: 47 kg

DRUGS (4)
  1. CABERGOLINE [Suspect]
     Indication: PARKINSON'S DISEASE
     Dosage: 4 MG/DAY, ORAL
     Route: 048
     Dates: start: 20010309
  2. RULIDE [Concomitant]
  3. L-DOPA [Concomitant]
  4. COMTAN [Concomitant]

REACTIONS (24)
  - ASPARTATE AMINOTRANSFERASE INCREASED [None]
  - BLOOD CREATINE PHOSPHOKINASE INCREASED [None]
  - BLOOD SODIUM DECREASED [None]
  - CATAPLEXY [None]
  - CHLAMYDIAL INFECTION [None]
  - COAGULOPATHY [None]
  - CONSCIOUSNESS FLUCTUATING [None]
  - HAEMOLYTIC ANAEMIA [None]
  - HEPATIC FUNCTION ABNORMAL [None]
  - HICCUPS [None]
  - LEUKOCYTOSIS [None]
  - LIVER DISORDER [None]
  - LOSS OF CONSCIOUSNESS [None]
  - LOWER RESPIRATORY TRACT INFECTION [None]
  - MOBILITY DECREASED [None]
  - MOTOR DYSFUNCTION [None]
  - MUCOSAL INFLAMMATION [None]
  - MYALGIA [None]
  - MYCOPLASMA INFECTION [None]
  - PYREXIA [None]
  - RASH [None]
  - STOMATITIS [None]
  - THROMBOCYTOPENIA [None]
  - VIRAL INFECTION [None]
